FAERS Safety Report 26062474 (Version 1)
Quarter: 2025Q4

REPORT INFORMATION
  Report Type: Report from Study
  Country: US (occurrence: US)
  Receive Date: 20251119
  Receipt Date: 20251119
  Transmission Date: 20260118
  Serious: Yes (Hospitalization)
  Sender: BIOGEN
  Company Number: US-BIOGEN-2091060

PATIENT
  Age: 54 Year
  Sex: Female

DRUGS (2)
  1. VUMERITY [Suspect]
     Active Substance: DIROXIMEL FUMARATE
     Indication: Multiple sclerosis
     Dosage: THEREAFTER (MAINTENANCE DOSE)
     Dates: start: 20250618
  2. VUMERITY [Suspect]
     Active Substance: DIROXIMEL FUMARATE
     Dosage: FOR 7 DAYS (STARTING DOSE)
     Dates: start: 20250611

REACTIONS (3)
  - Partial seizures [Unknown]
  - Rash pruritic [Unknown]
  - Flushing [Unknown]

NARRATIVE: CASE EVENT DATE: 20250101
